FAERS Safety Report 8251014-5 (Version None)
Quarter: 2012Q2

REPORT INFORMATION
  Report Type: 
  Country: None (occurrence: None)
  Receive Date: 20120402
  Receipt Date: 20120327
  Transmission Date: 20120825
  Serious: No
  Sender: FDA-Public Use
  Company Number: US-PFIZER INC-2012078775

PATIENT
  Sex: Male
  Weight: 83.9 kg

DRUGS (4)
  1. LEVOTHYROXINE [Concomitant]
     Indication: HYPERTHYROIDISM
     Dosage: 100 UG, UNK
  2. LYRICA [Suspect]
     Indication: NEUROPATHY PERIPHERAL
     Dosage: 150 MG, 2X/DAY
     Route: 048
     Dates: start: 20120303, end: 20120304
  3. GABAPENTIN [Suspect]
     Indication: NEUROPATHY PERIPHERAL
     Dosage: 800 MG, 2X/DAY
     Route: 048
     Dates: start: 20100101, end: 20120302
  4. GABAPENTIN [Suspect]
     Dosage: 800 MG, 2X/DAY
     Dates: start: 20120304

REACTIONS (4)
  - JOINT SWELLING [None]
  - ARTHRALGIA [None]
  - OEDEMA PERIPHERAL [None]
  - PAIN IN EXTREMITY [None]
